FAERS Safety Report 8347058-5 (Version None)
Quarter: 2012Q2

REPORT INFORMATION
  Report Type: 
  Country: None (occurrence: None)
  Receive Date: 20120509
  Receipt Date: 20120503
  Transmission Date: 20120825
  Serious: Yes (Hospitalization)
  Sender: FDA-Public Use
  Company Number: GB-PFIZER INC-2012108623

PATIENT
  Age: 75 Year
  Sex: Male
  Weight: 100 kg

DRUGS (3)
  1. FEXOFENADINE [Concomitant]
     Dosage: 180 MG, 1X/DAY
  2. RAMIPRIL [Suspect]
     Indication: HYPERTENSION
     Dosage: 5 MG, 1X/DAY
     Route: 048
     Dates: start: 20120329, end: 20120419
  3. LORATADINE [Concomitant]
     Dosage: 10 MG, 1X/DAY

REACTIONS (7)
  - SKIN ULCER [None]
  - ERYTHEMA [None]
  - INFLAMMATION [None]
  - SKIN EXFOLIATION [None]
  - RASH PRURITIC [None]
  - OEDEMA PERIPHERAL [None]
  - WOUND SECRETION [None]
